FAERS Safety Report 5688846-3 (Version None)
Quarter: 2008Q1

REPORT INFORMATION
  Report Type: 
  Country: None (occurrence: None)
  Receive Date: 20080331
  Receipt Date: 20080325
  Transmission Date: 20080703
  Serious: Yes (Life-Threatening)
  Sender: FDA-Public Use
  Company Number: US-NOVOPROD-273415

PATIENT
  Age: 55 Year
  Sex: Male

DRUGS (2)
  1. NOVOLOG [Suspect]
     Indication: TYPE 1 DIABETES MELLITUS
     Dosage: 13 IU, UNK
     Route: 058
  2. NOVOLIN N [Concomitant]
     Indication: TYPE 1 DIABETES MELLITUS
     Dosage: 4 IU, UNK
     Route: 058

REACTIONS (4)
  - BLOOD GLUCOSE DECREASED [None]
  - CONTUSION [None]
  - FALL [None]
  - LOSS OF CONSCIOUSNESS [None]
